FAERS Safety Report 4701119-8 (Version None)
Quarter: 2005Q2

REPORT INFORMATION
  Report Type: 
  Country: None (occurrence: None)
  Receive Date: 20050628
  Receipt Date: 20050627
  Transmission Date: 20051028
  Serious: Yes (Death, Hospitalization)
  Sender: FDA-Public Use
  Company Number: PHRM2005FR01955

PATIENT
  Sex: Male

DRUGS (3)
  1. STALEVO 100 [Suspect]
     Route: 048
  2. ANDROCUR [Suspect]
     Route: 048
  3. EXELON [Suspect]
     Route: 048

REACTIONS (2)
  - HEPATITIS [None]
  - PULMONARY EMBOLISM [None]
